FAERS Safety Report 9139060 (Version 1)
Quarter: 2013Q1

REPORT INFORMATION
  Report Type: Spontaneous
  Country: US (occurrence: US)
  Receive Date: 20130305
  Receipt Date: 20130305
  Transmission Date: 20140127
  Serious: Yes (Death)
  Sender: FDA-Public Use
  Company Number: US-ENDO PHARMACEUTICALS INC.-PERC20110038

PATIENT
  Age: 40 Year
  Sex: Male

DRUGS (2)
  1. PERCOCET [Suspect]
     Indication: PRODUCT USED FOR UNKNOWN INDICATION
     Dosage: UNK
     Route: 048
  2. LIDODERM [Suspect]
     Indication: PAIN
     Dosage: 5%
     Route: 061
     Dates: start: 2004

REACTIONS (5)
  - Road traffic accident [Unknown]
  - Disorientation [Unknown]
  - Drug screen positive [Unknown]
  - Incorrect drug administration duration [Unknown]
  - Hypothermia [None]
